FAERS Safety Report 26071303 (Version 3)
Quarter: 2025Q4

REPORT INFORMATION
  Report Type: Spontaneous
  Country: US (occurrence: US)
  Receive Date: 20251120
  Receipt Date: 20251125
  Transmission Date: 20260118
  Serious: Yes (Other)
  Sender: ALEXION PHARMACEUTICALS
  Company Number: US-AstraZeneca-CH-00994014A

PATIENT
  Sex: Female

DRUGS (2)
  1. BREZTRI [Suspect]
     Active Substance: BUDESONIDE\FORMOTEROL\GLYCOPYRROLATE
     Route: 065
  2. SYMBICORT [Concomitant]
     Active Substance: BUDESONIDE\FORMOTEROL FUMARATE DIHYDRATE
     Route: 065

REACTIONS (8)
  - Illness [Unknown]
  - Insurance issue [Unknown]
  - Drug effect less than expected [Unknown]
  - Pneumonia [Unknown]
  - Sepsis [Unknown]
  - Asthma [Unknown]
  - Upper respiratory tract infection [Unknown]
  - Influenza [Unknown]
